FAERS Safety Report 7791462-0 (Version None)
Quarter: 2011Q4

REPORT INFORMATION
  Report Type: 
  Country: None (occurrence: None)
  Receive Date: 20111003
  Receipt Date: 20110927
  Transmission Date: 20120403
  Serious: Yes (Hospitalization, Other)
  Sender: FDA-Public Use
  Company Number: US-AMGEN-USASP2011046095

PATIENT
  Age: 81 Year
  Sex: Female
  Weight: 88.435 kg

DRUGS (7)
  1. NPLATE [Suspect]
     Indication: IDIOPATHIC THROMBOCYTOPENIC PURPURA
     Dosage: 190 UNK, QWK
     Route: 058
     Dates: start: 20100812
  2. METOPROLOL [Concomitant]
     Dosage: 25 MG, QD
     Route: 048
  3. PRAVASTATIN [Concomitant]
     Dosage: 40 MG, QD
     Route: 048
  4. COLACE [Concomitant]
     Dosage: UNK UNK, PRN
     Route: 048
  5. FEOSOL [Concomitant]
     Indication: IRON DEFICIENCY
     Dosage: 1 DF, UNK
     Route: 048
  6. COUMADIN [Concomitant]
     Indication: PULMONARY EMBOLISM
  7. COUMADIN [Concomitant]
     Indication: DEEP VEIN THROMBOSIS
     Dosage: 2 MG, QD
     Route: 048

REACTIONS (4)
  - PLATELET COUNT DECREASED [None]
  - DIVERTICULUM [None]
  - GASTROINTESTINAL HAEMORRHAGE [None]
  - DIVERTICULUM INTESTINAL HAEMORRHAGIC [None]
